FAERS Safety Report 10861763 (Version 1)
Quarter: 2015Q1

REPORT INFORMATION
  Report Type: Spontaneous
  Country: US (occurrence: US)
  Receive Date: 20150224
  Receipt Date: 20150224
  Transmission Date: 20150721
  Serious: No
  Sender: FDA-Public Use
  Company Number: US-PFIZER INC-2015065082

PATIENT
  Sex: Female

DRUGS (1)
  1. ADVIL [Suspect]
     Active Substance: IBUPROFEN
     Indication: PAIN
     Dosage: UNK
     Dates: end: 201502

REACTIONS (5)
  - Pain in extremity [Recovering/Resolving]
  - Bone disorder [Unknown]
  - Bronchitis [Unknown]
  - Mobility decreased [Unknown]
  - Oropharyngeal pain [Unknown]
